FAERS Safety Report 7273826-7 (Version None)
Quarter: 2011Q1

REPORT INFORMATION
  Report Type: 
  Country: None (occurrence: None)
  Receive Date: 20110203
  Receipt Date: 20110120
  Transmission Date: 20110831
  Serious: Yes (Hospitalization)
  Sender: FDA-Public Use
  Company Number: DE-WATSON-2011-01211

PATIENT
  Age: 72 Year
  Sex: Female

DRUGS (2)
  1. ENALAPRIL MALEATE [Suspect]
     Indication: HYPERTENSION
     Dosage: UNK
  2. ALISKIREN [Suspect]
     Indication: HYPERTENSION
     Dosage: UNK

REACTIONS (7)
  - BLOOD CREATINE INCREASED [None]
  - DIZZINESS [None]
  - DRUG INTERACTION [None]
  - DRUG INEFFECTIVE [None]
  - PALPITATIONS [None]
  - BRADYCARDIA [None]
  - HYPERKALAEMIA [None]
